FAERS Safety Report 5788905-0 (Version None)
Quarter: 2008Q2

REPORT INFORMATION
  Report Type: 
  Country: None (occurrence: None)
  Receive Date: 20080626
  Receipt Date: 20080617
  Transmission Date: 20081010
  Serious: Yes (Death)
  Sender: FDA-Public Use
  Company Number: JP-BAYER-200811187BYL

PATIENT
  Age: 72 Year
  Sex: Male

DRUGS (22)
  1. ASPIRIN [Suspect]
     Indication: DRUG USE FOR UNKNOWN INDICATION
     Dosage: TOTAL DAILY DOSE: 100 MG  UNIT DOSE: 100 MG
     Route: 048
     Dates: start: 20061025, end: 20061101
  2. ASPIRIN [Suspect]
     Dosage: TOTAL DAILY DOSE: 100 MG  UNIT DOSE: 100 MG
     Route: 048
     Dates: start: 20061130, end: 20061206
  3. ROPION [Suspect]
     Indication: PYREXIA
     Route: 041
     Dates: start: 20061205, end: 20061205
  4. ROPION [Suspect]
     Route: 041
     Dates: start: 20061206, end: 20061208
  5. LOXONIN [Suspect]
     Indication: DRUG USE FOR UNKNOWN INDICATION
     Route: 048
     Dates: start: 20061207, end: 20061207
  6. LOXONIN [Suspect]
     Route: 048
     Dates: start: 20061110, end: 20061110
  7. LOXONIN [Suspect]
     Route: 048
     Dates: start: 20061129, end: 20061129
  8. URSO 250 [Suspect]
     Indication: LIVER DISORDER
     Route: 048
     Dates: start: 20061128, end: 20061209
  9. MUCOSTA [Suspect]
     Indication: DRUG USE FOR UNKNOWN INDICATION
     Route: 048
     Dates: start: 20061128, end: 20061209
  10. PREDNISOLONE [Concomitant]
     Indication: INFECTIOUS MONONUCLEOSIS
     Route: 048
     Dates: start: 20061019, end: 20061208
  11. ITOROL [Concomitant]
     Indication: DRUG USE FOR UNKNOWN INDICATION
     Route: 048
     Dates: start: 20061024, end: 20061108
  12. ITOROL [Concomitant]
     Route: 048
     Dates: start: 20061129, end: 20061129
  13. TANKARU [Concomitant]
     Indication: DRUG USE FOR UNKNOWN INDICATION
     Route: 048
     Dates: start: 20061025, end: 20061107
  14. OMEPRAL [Concomitant]
     Indication: DRUG USE FOR UNKNOWN INDICATION
     Route: 048
     Dates: start: 20061025, end: 20061107
  15. OMEPRAL [Concomitant]
     Route: 048
     Dates: start: 20061110, end: 20061113
  16. OMEPRAL [Concomitant]
     Route: 048
     Dates: start: 20061129, end: 20061129
  17. ALOSENN [Concomitant]
     Indication: DRUG USE FOR UNKNOWN INDICATION
     Route: 048
     Dates: start: 20061025, end: 20061107
  18. HUMACART 3/7 [Concomitant]
     Indication: DIABETES MELLITUS
     Route: 058
     Dates: start: 20061025, end: 20061107
  19. LEVOFLOXACIN [Concomitant]
     Indication: DRUG USE FOR UNKNOWN INDICATION
     Route: 048
     Dates: start: 20061030, end: 20061102
  20. LIVALO [Concomitant]
     Indication: DRUG USE FOR UNKNOWN INDICATION
     Route: 048
     Dates: start: 20061110, end: 20061113
  21. LIVALO [Concomitant]
     Route: 048
     Dates: start: 20061129, end: 20061129
  22. BUMINATE [Concomitant]
     Indication: TOXIC EPIDERMAL NECROLYSIS
     Route: 041
     Dates: start: 20061207, end: 20061210

REACTIONS (8)
  - HEART RATE DECREASED [None]
  - HEPATIC FUNCTION ABNORMAL [None]
  - MULTI-ORGAN FAILURE [None]
  - PAIN [None]
  - PANCREATIC DISORDER [None]
  - SEPSIS [None]
  - STAPHYLOCOCCAL INFECTION [None]
  - TOXIC EPIDERMAL NECROLYSIS [None]
